FAERS Safety Report 14659828 (Version 2)
Quarter: 2019Q1

REPORT INFORMATION
  Report Type: Report from Study
  Country: DE (occurrence: DE)
  Receive Date: 20180320
  Receipt Date: 20190305
  Transmission Date: 20190417
  Serious: Yes (Death, Hospitalization)
  Sender: FDA-Public Use
  Company Number: DE-PFIZER INC-2018111211

PATIENT
  Sex: Male
  Weight: 73 kg

DRUGS (22)
  1. BISOPROLOL [Concomitant]
     Active Substance: BISOPROLOL
     Indication: HYPERTENSION
     Dosage: 2.5 MG, UNK
     Route: 048
     Dates: start: 20151022
  2. BISOPROLOL [Concomitant]
     Active Substance: BISOPROLOL
     Dosage: 1.25 MG, 1X/DAY
     Route: 048
  3. L-THYROXIN [Concomitant]
     Active Substance: LEVOTHYROXINE SODIUM
     Dosage: 50 UG, UNK
     Route: 048
  4. AVASTIN [Suspect]
     Active Substance: BEVACIZUMAB
     Dosage: 365 MG, UNK
     Route: 042
     Dates: start: 20160415
  5. IRINOTECAN [Suspect]
     Active Substance: IRINOTECAN
     Indication: COLORECTAL CANCER
     Dosage: 136 MG, WEEKLY
     Route: 042
     Dates: start: 20150108, end: 20150115
  6. AVASTIN [Suspect]
     Active Substance: BEVACIZUMAB
     Indication: COLORECTAL CANCER METASTATIC
     Dosage: 365 MG, 2X/WEEK
     Route: 042
     Dates: start: 20141127, end: 20151022
  7. IRINOTECAN [Suspect]
     Active Substance: IRINOTECAN
     Dosage: 102 MG, UNK
     Route: 042
     Dates: start: 20150924, end: 20151029
  8. 5-FLUOROURACIL /00098801/ [Suspect]
     Active Substance: FLUOROURACIL
     Dosage: 1700 MG (1000 MG/M2), WEEKLY
     Route: 041
     Dates: start: 20151125
  9. ASS LIGHT 100 [Concomitant]
     Indication: HYPERTENSION
  10. MONO-EMBOLEX [Concomitant]
     Active Substance: CERTOPARIN SODIUM
     Indication: DEEP VEIN THROMBOSIS
     Route: 058
     Dates: start: 20141104
  11. TAMSUBLOCK [Concomitant]
     Active Substance: TAMSULOSIN HYDROCHLORIDE
     Indication: BENIGN PROSTATIC HYPERPLASIA
     Route: 048
     Dates: start: 20141111
  12. 5-FLUOROURACIL /00098801/ [Suspect]
     Active Substance: FLUOROURACIL
     Indication: COLORECTAL CANCER
     Dosage: 3400 MG, WEEKLY
     Route: 042
     Dates: start: 20141113, end: 20150608
  13. CITALOPRAM [Concomitant]
     Active Substance: CITALOPRAM HYDROBROMIDE
     Indication: SLEEP DISORDER
     Route: 048
     Dates: start: 20150623
  14. CALCIUM FOLINATE [Suspect]
     Active Substance: LEUCOVORIN CALCIUM
     Dosage: 340 MG, UNK
     Route: 042
     Dates: start: 20151125
  15. IRINOTECAN [Suspect]
     Active Substance: IRINOTECAN
     Dosage: 50 MG/M2
     Route: 042
     Dates: start: 20151125
  16. ASS LIGHT 100 [Concomitant]
     Indication: CEREBROVASCULAR DISORDER
     Route: 048
  17. CALCIUM FOLINATE [Suspect]
     Active Substance: LEUCOVORIN CALCIUM
     Indication: COLORECTAL CANCER
     Dosage: 850 MG, WEEKLY
     Route: 042
     Dates: start: 20141113, end: 20150608
  18. AVASTIN [Suspect]
     Active Substance: BEVACIZUMAB
     Dosage: 365 MG, UNK
     Route: 042
     Dates: start: 20160317
  19. OXALIPLATIN. [Suspect]
     Active Substance: OXALIPLATIN
     Indication: COLORECTAL CANCER
     Dosage: 85 MG, WEEKLY
     Route: 042
     Dates: start: 20150324, end: 20150608
  20. L-THYROXIN [Concomitant]
     Active Substance: LEVOTHYROXINE SODIUM
     Indication: HYPOTHYROIDISM
     Route: 048
  21. AVASTIN [Suspect]
     Active Substance: BEVACIZUMAB
     Dosage: 365 MG, UNK
     Route: 042
     Dates: start: 20151214
  22. CITALOPRAM [Concomitant]
     Active Substance: CITALOPRAM HYDROBROMIDE
     Indication: ANXIETY DISORDER

REACTIONS (33)
  - Syncope [Recovered/Resolved]
  - Circulatory collapse [Recovered/Resolved]
  - Atrial flutter [Recovered/Resolved]
  - Anaemia of malignant disease [Recovered/Resolved]
  - Cachexia [Recovered/Resolved]
  - Fatigue [Recovered/Resolved]
  - Polyneuropathy [Recovered/Resolved]
  - Polyneuropathy [Recovered/Resolved]
  - Salivary hypersecretion [Recovered/Resolved]
  - Neoplasm progression [Recovered/Resolved]
  - Systemic inflammatory response syndrome [Recovered/Resolved]
  - Ascites [Recovered/Resolved]
  - Pain [Recovered/Resolved]
  - Proteinuria [Recovered/Resolved]
  - Diarrhoea [Recovered/Resolved]
  - Fatigue [Recovered/Resolved]
  - Diarrhoea [Recovered/Resolved]
  - Fatigue [Recovered/Resolved]
  - Dehydration [Recovered/Resolved]
  - Dizziness [Recovered/Resolved]
  - Abdominal pain lower [Recovered/Resolved]
  - Diarrhoea [Recovered/Resolved]
  - Haemoglobin decreased [Recovered/Resolved]
  - Hypertension [Recovered/Resolved]
  - Klebsiella bacteraemia [Recovered/Resolved]
  - Cholestasis [Recovered/Resolved]
  - Diarrhoea [Recovered/Resolved]
  - Abdominal pain [Recovered/Resolved]
  - Tachycardia [Recovered/Resolved]
  - General physical health deterioration [Recovered/Resolved]
  - Tachycardia [Recovered/Resolved]
  - Diarrhoea [Recovered/Resolved]
  - Chills [Recovered/Resolved]

NARRATIVE: CASE EVENT DATE: 20141113
